FAERS Safety Report 5191440-4 (Version None)
Quarter: 2006Q4

REPORT INFORMATION
  Report Type: 
  Country: None (occurrence: None)
  Receive Date: 20061226
  Receipt Date: 20061215
  Transmission Date: 20070319
  Serious: Yes (Life-Threatening)
  Sender: FDA-Public Use
  Company Number: FR-MERCK-0612FRA00063

PATIENT
  Age: 82 Year
  Sex: Female

DRUGS (2)
  1. INDOCIN [Suspect]
     Indication: PROCEDURAL PAIN
     Route: 048
     Dates: start: 20061115, end: 20061119
  2. ESOMEPRAZOLE MAGNESIUM [Concomitant]
     Route: 042
     Dates: start: 20061115, end: 20061119

REACTIONS (1)
  - HYPONATRAEMIA [None]
